FAERS Safety Report 15423755 (Version 1)
Quarter: 2018Q3

REPORT INFORMATION
  Report Type: Spontaneous
  Country: CN (occurrence: CN)
  Receive Date: 20180925
  Receipt Date: 20180925
  Transmission Date: 20181010
  Serious: Yes (Other)
  Sender: FDA-Public Use
  Company Number: CN-BAYER-2018-172560

PATIENT
  Age: 14 Month
  Sex: Male

DRUGS (1)
  1. CLARITYNE 10 MG [Suspect]
     Active Substance: LORATADINE
     Indication: RASH
     Dosage: 3 MG, UNK
     Route: 048
     Dates: start: 20180911, end: 20180911

REACTIONS (6)
  - Drug administered to patient of inappropriate age [None]
  - Product prescribing issue [None]
  - Salivary hypersecretion [Recovered/Resolved]
  - Hyperhidrosis [Recovered/Resolved]
  - Cholinergic syndrome [Recovered/Resolved]
  - Blood creatine phosphokinase increased [Recovered/Resolved]

NARRATIVE: CASE EVENT DATE: 20180911
